FAERS Safety Report 23145794 (Version 2)
Quarter: 2023Q4

REPORT INFORMATION
  Report Type: Other
  Country: US (occurrence: None)
  Receive Date: 20231103
  Receipt Date: 20231110
  Transmission Date: 20240110
  Serious: Yes (Death)
  Sender: FDA-Public Use
  Company Number: US-ROCHE-3451851

PATIENT
  Age: 81 Year
  Sex: Male

DRUGS (24)
  1. ALECENSA [Suspect]
     Active Substance: ALECTINIB HYDROCHLORIDE
     Indication: Malignant neoplasm of unknown primary site
     Dosage: TAKE 4 CAPSULES BY MOUTH TWICE A DAY, QUANTITY: 240
     Route: 048
  2. ALECENSA [Suspect]
     Active Substance: ALECTINIB HYDROCHLORIDE
     Indication: Malignant urinary tract neoplasm
  3. ALECENSA [Suspect]
     Active Substance: ALECTINIB HYDROCHLORIDE
     Indication: Lung neoplasm malignant
  4. ALECENSA [Suspect]
     Active Substance: ALECTINIB HYDROCHLORIDE
     Indication: Lung neoplasm malignant
  5. ALECENSA [Suspect]
     Active Substance: ALECTINIB HYDROCHLORIDE
     Indication: Metastases to kidney
  6. ALECENSA [Suspect]
     Active Substance: ALECTINIB HYDROCHLORIDE
     Indication: Metastases to urinary tract
  7. MUCOMYST [Concomitant]
     Active Substance: ACETYLCYSTEINE
     Dosage: INHALE 200 MG/ML (20 %)
  8. ELIQUIS [Concomitant]
     Active Substance: APIXABAN
     Route: 048
  9. DOCUSATE SODIUM [Concomitant]
     Active Substance: DOCUSATE SODIUM
     Route: 048
  10. PEPCID [Concomitant]
     Active Substance: FAMOTIDINE
     Route: 048
  11. ATROVENT [Concomitant]
     Active Substance: IPRATROPIUM BROMIDE
     Dosage: 21 MCG (0.03 %), 4 SPARAYS
     Route: 045
  12. ATROVENT [Concomitant]
     Active Substance: IPRATROPIUM BROMIDE
     Dosage: 42 MCG (0.06 %)
  13. DUONEB [Concomitant]
     Active Substance: ALBUTEROL SULFATE\IPRATROPIUM BROMIDE
     Dosage: 0.5 TO 2.5 MG/ML
     Route: 045
  14. ATIVAN [Concomitant]
     Active Substance: LORAZEPAM
     Dosage: BY MOUTH NIGHTLY
     Route: 048
  15. MAGNESIUM OXIDE [Concomitant]
     Active Substance: MAGNESIUM OXIDE
     Dosage: 400 MG (241.3 MG), GIVE 23 MG TO EQUAL 6 MG HS AS NEEDED
     Route: 048
  16. MELATONIN [Concomitant]
     Active Substance: MELATONIN
     Indication: Insomnia
     Route: 048
  17. PROAMATINE [Concomitant]
     Active Substance: MIDODRINE HYDROCHLORIDE
     Route: 048
  18. SINGULAIR [Concomitant]
     Active Substance: MONTELUKAST SODIUM
     Dosage: NIGHTLY
     Route: 048
  19. MINERALS\VITAMINS [Concomitant]
     Active Substance: MINERALS\VITAMINS
     Route: 048
  20. GLYCOLAX [Concomitant]
     Active Substance: POLYETHYLENE GLYCOL 3350
     Indication: Constipation
     Dosage: 1 SCOOP BY MOUTH
     Route: 048
  21. DELTASONE [Concomitant]
     Active Substance: PREDNISONE
     Dosage: EVERY OTHER DAY
     Route: 048
  22. ROZEREM [Concomitant]
     Active Substance: RAMELTEON
     Dosage: NIGHTLY AS NEEDED FOR SLEEP
     Route: 048
  23. SENOKOT [Concomitant]
     Active Substance: SENNOSIDES
     Route: 048
  24. DEMADEX [Concomitant]
     Active Substance: TORSEMIDE
     Dosage: TAKE TWO TABLETS 40 MG PER DAY
     Route: 048

REACTIONS (1)
  - Death [Fatal]
